FAERS Safety Report 4382330-5 (Version None)
Quarter: 2004Q2

REPORT INFORMATION
  Report Type: 
  Country: None (occurrence: None)
  Receive Date: 20040616
  Receipt Date: 20040608
  Transmission Date: 20050107
  Serious: Yes (Hospitalization, Other)
  Sender: FDA-Public Use
  Company Number: DEWYE749810MAY04

PATIENT
  Age: 73 Year
  Sex: Female

DRUGS (2)
  1. VENLAFAXINE HCL [Suspect]
     Dosage: 50 TABLETS (OVERDOSE AMOUNT: 7500 MG)
     Route: 048
     Dates: start: 20040508, end: 20040508
  2. LAMICTAL [Suspect]
     Dosage: 50 TABELTS (OVERDOSE AMOUNT: 1250 MG)
     Route: 048
     Dates: start: 20040508, end: 20040508

REACTIONS (9)
  - BLOOD CREATINE PHOSPHOKINASE INCREASED [None]
  - BLOOD POTASSIUM DECREASED [None]
  - BLOOD SODIUM DECREASED [None]
  - COMA [None]
  - CONTUSION [None]
  - ELECTROCARDIOGRAM T WAVE INVERSION [None]
  - INTENTIONAL OVERDOSE [None]
  - LOSS OF CONSCIOUSNESS [None]
  - RESPIRATORY FAILURE [None]
